FAERS Safety Report 7462977-X (Version None)
Quarter: 2011Q2

REPORT INFORMATION
  Report Type: 
  Country: None (occurrence: None)
  Receive Date: 20110506
  Receipt Date: 20110427
  Transmission Date: 20111010
  Serious: Yes (Hospitalization, Other)
  Sender: FDA-Public Use
  Company Number: PHHY2011FR36253

PATIENT
  Sex: Male

DRUGS (9)
  1. METFORMIN [Concomitant]
     Dosage: 850 MG, TID
  2. TAHOR [Concomitant]
     Dosage: 40 MG, UNK
  3. EFFERALGAN [Concomitant]
     Dosage: UNK UKN, UNK
  4. ZOPHREN [Concomitant]
     Indication: NAUSEA
     Dosage: UNK UKN, UNK
  5. ERBITUX [Suspect]
     Indication: SQUAMOUS CELL CARCINOMA
     Dosage: 770 MG, UNK
     Route: 042
     Dates: start: 20110214
  6. COVERSYL [Concomitant]
     Dosage: 10 MG, UNK
  7. DIPROSONE [Concomitant]
     Dosage: UNK UKN, UNK
  8. CARBOPLATIN [Suspect]
     Indication: SQUAMOUS CELL CARCINOMA
     Dosage: 820 MG, UNK
     Route: 042
     Dates: start: 20110221
  9. AMLODIPINE BESYLATE [Concomitant]
     Dosage: 5 MG, UNK

REACTIONS (15)
  - FOOD INTOLERANCE [None]
  - LYMPHOPENIA [None]
  - ANXIETY [None]
  - VOMITING [None]
  - ERYTHEMA [None]
  - DYSPHAGIA [None]
  - RADIATION SKIN INJURY [None]
  - NEUTROPENIA [None]
  - TONSILLAR ULCER [None]
  - PURPURA [None]
  - BLOOD PRESSURE DECREASED [None]
  - WEIGHT DECREASED [None]
  - MOUTH ULCERATION [None]
  - ODYNOPHAGIA [None]
  - NAUSEA [None]
